FAERS Safety Report 6820822-7 (Version None)
Quarter: 2010Q3

REPORT INFORMATION
  Report Type: 
  Country: None (occurrence: None)
  Receive Date: 20100707
  Receipt Date: 20070611
  Transmission Date: 20110219
  Serious: No
  Sender: FDA-Public Use
  Company Number: US-PFIZER INC-2006147603

PATIENT
  Sex: Female

DRUGS (1)
  1. SERTRALINE [Suspect]

REACTIONS (8)
  - ANAL FISSURE [None]
  - CONSTIPATION [None]
  - DEPRESSION [None]
  - FEELING OF DESPAIR [None]
  - MENTAL IMPAIRMENT [None]
  - SKIN LESION [None]
  - SPEECH DISORDER [None]
  - STOMATITIS [None]
